FAERS Safety Report 17591249 (Version 3)
Quarter: 2021Q3

REPORT INFORMATION
  Report Type: Spontaneous
  Country: US (occurrence: US)
  Receive Date: 20200327
  Receipt Date: 20210914
  Transmission Date: 20211014
  Serious: No
  Sender: FDA-Public Use
  Company Number: US-PFIZER INC-2020124193

PATIENT
  Age: 42 Year
  Sex: Female

DRUGS (3)
  1. XELJANZ XR [Suspect]
     Active Substance: TOFACITINIB CITRATE
     Dosage: 11 UNK
     Dates: start: 20210615
  2. XELJANZ XR [Suspect]
     Active Substance: TOFACITINIB CITRATE
     Dosage: 11 MG
     Dates: start: 20200503
  3. XELJANZ XR [Suspect]
     Active Substance: TOFACITINIB CITRATE
     Dosage: 11 MG, UNK
     Dates: start: 20191201

REACTIONS (9)
  - Hypersensitivity [Unknown]
  - Nausea [Unknown]
  - Product dose omission issue [Unknown]
  - Fibromyalgia [Unknown]
  - Vomiting [Unknown]
  - Gait disturbance [Unknown]
  - Back disorder [Unknown]
  - Pain [Unknown]
  - Loss of personal independence in daily activities [Unknown]
